FAERS Safety Report 11240183 (Version 1)
Quarter: 2015Q3

REPORT INFORMATION
  Report Type: Spontaneous
  Country: GB (occurrence: GB)
  Receive Date: 20150706
  Receipt Date: 20150706
  Transmission Date: 20151125
  Serious: Yes (Death)
  Sender: FDA-Public Use
  Company Number: PHHY2015GB077246

PATIENT
  Age: 58 Year
  Sex: Male

DRUGS (7)
  1. METHOTREXATE [Suspect]
     Active Substance: METHOTREXATE
     Indication: PROPHYLAXIS
     Route: 065
  2. IFOSFAMIDE. [Concomitant]
     Active Substance: IFOSFAMIDE
     Indication: LYMPHOMA
     Route: 065
  3. DOXORUBICIN [Concomitant]
     Active Substance: DOXORUBICIN
     Indication: LYMPHOMA
     Route: 065
  4. VINCRISTINE [Concomitant]
     Active Substance: VINCRISTINE
     Indication: LYMPHOMA
     Route: 065
  5. ETOPOSIDE. [Concomitant]
     Active Substance: ETOPOSIDE
     Indication: LYMPHOMA
     Route: 065
  6. CYCLOPHOSPHAMIDE. [Concomitant]
     Active Substance: CYCLOPHOSPHAMIDE
     Indication: LYMPHOMA
     Route: 065
  7. CYTARABINE. [Concomitant]
     Active Substance: CYTARABINE
     Indication: LYMPHOMA
     Route: 065

REACTIONS (9)
  - Sepsis [Fatal]
  - Balance disorder [Unknown]
  - Nausea [Unknown]
  - Multi-organ failure [Fatal]
  - Headache [Unknown]
  - Confusional state [Unknown]
  - Thrombocytopenia [Fatal]
  - Neutropenia [Fatal]
  - Subdural hygroma [Fatal]
